FAERS Safety Report 19186850 (Version 1)
Quarter: 2021Q2

REPORT INFORMATION
  Report Type: Report from Study
  Country: CA (occurrence: CA)
  Receive Date: 20210427
  Receipt Date: 20210427
  Transmission Date: 20210717
  Serious: Yes (Other)
  Sender: FDA-Public Use
  Company Number: CA-UCBSA-2021018943

PATIENT
  Sex: Male

DRUGS (1)
  1. BRIVARACETAM [Suspect]
     Active Substance: BRIVARACETAM
     Indication: TONIC CONVULSION
     Dosage: 100 MILLIGRAM, 2X/DAY (BID)

REACTIONS (3)
  - Dysplasia [Unknown]
  - Partial seizures [Unknown]
  - Tonic convulsion [Unknown]

NARRATIVE: CASE EVENT DATE: 2019
